FAERS Safety Report 17374657 (Version 10)
Quarter: 2022Q2

REPORT INFORMATION
  Report Type: Spontaneous
  Country: US (occurrence: US)
  Receive Date: 20200205
  Receipt Date: 20220525
  Transmission Date: 20220720
  Serious: Yes (Other)
  Sender: FDA-Public Use
  Company Number: US-PFIZER INC-2020052652

PATIENT
  Age: 57 Year
  Sex: Female

DRUGS (2)
  1. IBRANCE [Suspect]
     Active Substance: PALBOCICLIB
     Indication: Breast cancer female
     Dosage: 100 MG
  2. IBRANCE [Suspect]
     Active Substance: PALBOCICLIB
     Dosage: 75 MG, CYCLIC (ONCE DAILY FOR 21 DAYS, FOLLOWED BY 7 DAYS OFF)
     Route: 048

REACTIONS (4)
  - Neutropenia [Unknown]
  - Product dose omission issue [Unknown]
  - Malaise [Unknown]
  - Feeling abnormal [Unknown]
